FAERS Safety Report 5794600-4 (Version None)
Quarter: 2008Q2

REPORT INFORMATION
  Report Type: 
  Country: None (occurrence: None)
  Receive Date: 20080627
  Receipt Date: 20080627
  Transmission Date: 20081010
  Serious: Yes (Hospitalization)
  Sender: FDA-Public Use
  Company Number: None

PATIENT
  Sex: Female
  Weight: 96.1626 kg

DRUGS (19)
  1. BUPIVACAINE [Suspect]
     Indication: POSTOPERATIVE ANALGESIA
     Dosage: VIA FEMORAL NERVE BLOCK @7ML/HR.
     Dates: start: 20070730
  2. OXYCONTIN [Suspect]
     Indication: POSTOPERATIVE ANALGESIA
     Dates: start: 20070730
  3. PERCOCET [Suspect]
     Indication: POSTOPERATIVE ANALGESIA
     Dates: start: 20070730
  4. NUBAIN [Suspect]
     Indication: POSTOPERATIVE ANALGESIA
     Dates: start: 20070730
  5. TIGAN [Suspect]
     Indication: POSTOPERATIVE ANALGESIA
     Dates: start: 20070730
  6. REGLAN [Suspect]
     Indication: POSTOPERATIVE ANALGESIA
     Dates: start: 20070730
  7. BENADRYL [Suspect]
     Indication: POSTOPERATIVE ANALGESIA
     Dates: start: 20070730
  8. ZOFRAN [Concomitant]
  9. DILAUDID [Concomitant]
  10. AMBIEN [Concomitant]
  11. ANCEF [Concomitant]
  12. GENTAMICIN [Concomitant]
  13. FERROUS SULFATE TAB [Concomitant]
  14. COLACE [Concomitant]
  15. ARIXTRA [Concomitant]
  16. TYLENOL [Concomitant]
  17. VICODIN [Concomitant]
  18. MAG CITRATE [Concomitant]
  19. INSULIN SLIDING SCALE [Concomitant]

REACTIONS (2)
  - CONVULSION [None]
  - POST PROCEDURAL COMPLICATION [None]
